FAERS Safety Report 24712241 (Version 1)
Quarter: 2024Q4

REPORT INFORMATION
  Report Type: Spontaneous
  Country: US (occurrence: US)
  Receive Date: 20241209
  Receipt Date: 20241209
  Transmission Date: 20250115
  Serious: Yes (Other)
  Sender: BAYER HEALTHCARE LLC
  Company Number: US-BAYER-2024A172441

PATIENT
  Sex: Male

DRUGS (1)
  1. AFRIN NO DRIP EXTRA MOISTURIZING [Suspect]
     Active Substance: OXYMETAZOLINE HYDROCHLORIDE
     Dosage: UNK

REACTIONS (1)
  - Drug dependence [Unknown]
